FAERS Safety Report 24981143 (Version 1)
Quarter: 2025Q1

REPORT INFORMATION
  Report Type: Spontaneous
  Country: CN (occurrence: CN)
  Receive Date: 20250218
  Receipt Date: 20250218
  Transmission Date: 20250408
  Serious: Yes (Hospitalization)
  Sender: BAYER HEALTHCARE PHARMACEUTICALS INC.
  Company Number: CN-BAYER-2025A021097

PATIENT
  Age: 68 Year
  Sex: Male
  Weight: 50 kg

DRUGS (1)
  1. STIVARGA [Suspect]
     Active Substance: REGORAFENIB MONOHYDRATE
     Indication: Hepatic cancer
     Dosage: 120 MG, QD
     Route: 048
     Dates: start: 20250127, end: 20250205

REACTIONS (10)
  - Decreased appetite [Recovering/Resolving]
  - Oral mucosa erosion [Recovering/Resolving]
  - Vulvar erosion [Recovering/Resolving]
  - Rash maculo-papular [Recovering/Resolving]
  - Lip erosion [Recovering/Resolving]
  - Oral mucosal scab [Recovering/Resolving]
  - Lip scab [Recovering/Resolving]
  - Skin exfoliation [Recovering/Resolving]
  - Product prescribing issue [None]
  - Incorrect dose administered [None]

NARRATIVE: CASE EVENT DATE: 20250101
